FAERS Safety Report 7015862-1 (Version None)
Quarter: 2010Q3

REPORT INFORMATION
  Report Type: 
  Country: None (occurrence: None)
  Receive Date: 20100927
  Receipt Date: 20091217
  Transmission Date: 20110219
  Serious: No
  Sender: FDA-Public Use
  Company Number: US-ASTRAZENECA-2008UW15294

PATIENT
  Age: 58 Year
  Sex: Female
  Weight: 79.4 kg

DRUGS (4)
  1. ARIMIDEX [Suspect]
     Indication: BREAST CANCER
     Route: 048
     Dates: start: 20071201
  2. LEVOTHYROXINE SODIUM [Concomitant]
  3. LISINOPRIL [Concomitant]
  4. ATENOLOL [Concomitant]

REACTIONS (6)
  - DIARRHOEA [None]
  - HEADACHE [None]
  - HYPERTENSION [None]
  - OSTEOPENIA [None]
  - OVARIAN CYST [None]
  - WEIGHT DECREASED [None]
